FAERS Safety Report 15183064 (Version 1)
Quarter: 2018Q3

REPORT INFORMATION
  Report Type: Spontaneous
  Country: FR (occurrence: FR)
  Receive Date: 20180723
  Receipt Date: 20180723
  Transmission Date: 20181010
  Serious: Yes (Death, Other)
  Sender: FDA-Public Use
  Company Number: FR-MYLANLABS-2018M1029281

PATIENT
  Age: 63 Year
  Sex: Female

DRUGS (10)
  1. LENALIDOMIDE [Suspect]
     Active Substance: LENALIDOMIDE
     Indication: KAPOSI^S SARCOMA
  2. BORTEZOMIB. [Suspect]
     Active Substance: BORTEZOMIB
     Indication: GASTROINTESTINAL AMYLOIDOSIS
     Dosage: 1.3 MG/M2, UNK (ON DAYS 1, 8,15 AND 21, OF A 28?DAY CYCLE)
     Route: 058
  3. CYCLOPHOSPHAMIDE. [Suspect]
     Active Substance: CYCLOPHOSPHAMIDE
     Indication: GASTROINTESTINAL AMYLOIDOSIS
  4. CYCLOPHOSPHAMIDE. [Suspect]
     Active Substance: CYCLOPHOSPHAMIDE
     Indication: GASTROINTESTINAL AMYLOIDOSIS
     Dosage: 500 MG, UNK (DAYS 1, 8,15)
     Route: 048
  5. DEXAMETHASONE. [Suspect]
     Active Substance: DEXAMETHASONE
     Indication: PARAPROTEINAEMIA
  6. INTERFERON ALFA NOS [Concomitant]
     Active Substance: INTERFERON ALFA-2A OR INTERFERON ALFA-2B
     Indication: HEPATITIS C
     Dosage: UNK
     Route: 065
  7. LENALIDOMIDE [Suspect]
     Active Substance: LENALIDOMIDE
     Indication: PARAPROTEINAEMIA
     Dosage: 5 MG, Q3W
     Route: 065
     Dates: start: 201401
  8. RIBAVIRIN. [Concomitant]
     Active Substance: RIBAVIRIN
     Indication: HEPATITIS C
     Dosage: UNK
     Route: 065
  9. DEXAMETHASONE. [Suspect]
     Active Substance: DEXAMETHASONE
     Indication: GASTROINTESTINAL AMYLOIDOSIS
     Dosage: 20 MG, BIWEEKLY
     Route: 048
     Dates: start: 201308
  10. CYCLOPHOSPHAMIDE. [Suspect]
     Active Substance: CYCLOPHOSPHAMIDE
     Indication: RENAL AMYLOIDOSIS

REACTIONS (7)
  - Skin lesion [Fatal]
  - Infection reactivation [Fatal]
  - Human herpesvirus 8 infection [Fatal]
  - Enterococcal bacteraemia [Fatal]
  - Kaposi^s sarcoma [Fatal]
  - Septic shock [Fatal]
  - Papule [Fatal]
